FAERS Safety Report 7071380-6 (Version None)
Quarter: 2010Q4

REPORT INFORMATION
  Report Type: 
  Country: None (occurrence: None)
  Receive Date: 20101029
  Receipt Date: 20101012
  Transmission Date: 20110411
  Serious: Yes (Other)
  Sender: FDA-Public Use
  Company Number: US-BAYER-201021639BCC

PATIENT
  Age: 60 Year
  Sex: Male
  Weight: 143 kg

DRUGS (5)
  1. ASPIRIN [Suspect]
     Indication: PRODUCT USED FOR UNKNOWN INDICATION
     Route: 048
  2. CAMPHO-PHENIQUE COLD SORE GEL [Suspect]
     Indication: ORAL HERPES
     Route: 002
     Dates: start: 20101008
  3. LISINOPRIL [Concomitant]
  4. INSULIN [Concomitant]
  5. ADVIL COLD AND SINUS [Concomitant]
     Indication: NASOPHARYNGITIS

REACTIONS (4)
  - BLISTER [None]
  - HERPES ZOSTER [None]
  - PRURITUS [None]
  - SWELLING FACE [None]
